FAERS Safety Report 9323908 (Version 1)
Quarter: 2013Q2

REPORT INFORMATION
  Report Type: Spontaneous
  Country: US (occurrence: US)
  Receive Date: 20130603
  Receipt Date: 20130603
  Transmission Date: 20140414
  Serious: Yes (Other)
  Sender: FDA-Public Use
  Company Number: US-PFIZER INC-2013167233

PATIENT
  Age: 64 Year
  Sex: Female
  Weight: 124 kg

DRUGS (7)
  1. LYRICA [Suspect]
     Indication: PAIN IN EXTREMITY
     Dosage: 50 MG, 2X/DAY
     Dates: start: 2013
  2. LYRICA [Suspect]
     Indication: BURNING SENSATION
  3. LYRICA [Suspect]
     Indication: MUSCLE SPASMS
  4. LYRICA [Suspect]
     Indication: HYPOAESTHESIA
  5. LYRICA [Suspect]
     Indication: LOCAL SWELLING
  6. LYRICA [Suspect]
     Indication: PAIN MANAGEMENT
  7. THEOPHYLLINE [Concomitant]
     Dosage: 300 MG, 2X/DAY

REACTIONS (1)
  - Kidney infection [Not Recovered/Not Resolved]
